FAERS Safety Report 20757692 (Version 1)
Quarter: 2022Q2

REPORT INFORMATION
  Report Type: Spontaneous
  Country: US (occurrence: US)
  Receive Date: 20220427
  Receipt Date: 20220427
  Transmission Date: 20220721
  Serious: No
  Sender: FDA-Public Use
  Company Number: US-PFIZER INC-202200627482

PATIENT
  Age: 50 Year
  Sex: Male

DRUGS (1)
  1. XELJANZ [Suspect]
     Active Substance: TOFACITINIB CITRATE
     Indication: Rheumatoid arthritis
     Dosage: 5 MG, 2X/DAY
     Route: 048
     Dates: start: 2016

REACTIONS (8)
  - Pain [Unknown]
  - Fatigue [Unknown]
  - Abdominal discomfort [Recovered/Resolved]
  - Vomiting [Unknown]
  - Influenza like illness [Unknown]
  - Condition aggravated [Unknown]
  - Discouragement [Recovered/Resolved]
  - Depressed mood [Recovered/Resolved]
